FAERS Safety Report 21912857 (Version 1)
Quarter: 2023Q1

REPORT INFORMATION
  Report Type: Spontaneous
  Country: US (occurrence: US)
  Receive Date: 20230125
  Receipt Date: 20230125
  Transmission Date: 20230418
  Serious: No
  Sender: FDA-Public Use
  Company Number: US-ALLERGAN-2239025US

PATIENT
  Sex: Female
  Weight: 56.7 kg

DRUGS (12)
  1. BOTOX [Suspect]
     Active Substance: ONABOTULINUMTOXINA
     Indication: Torticollis
     Dosage: 15 UNITS, SINGLE
     Dates: start: 20221005, end: 20221005
  2. BOTOX [Suspect]
     Active Substance: ONABOTULINUMTOXINA
     Indication: Bruxism
     Dosage: 5 UNITS, SINGLE
     Dates: start: 20221005, end: 20221005
  3. BOTOX [Suspect]
     Active Substance: ONABOTULINUMTOXINA
     Dosage: 25 UNITS, SINGLE
     Dates: start: 20221005, end: 20221005
  4. BOTOX [Suspect]
     Active Substance: ONABOTULINUMTOXINA
     Dosage: 5 UNITS, SINGLE
     Dates: start: 20221005, end: 20221005
  5. BOTOX [Suspect]
     Active Substance: ONABOTULINUMTOXINA
     Dosage: 15 UNITS, SINGLE
     Dates: start: 20221005, end: 20221005
  6. BOTOX [Suspect]
     Active Substance: ONABOTULINUMTOXINA
     Dosage: 20 UNITS, SINGLE
     Dates: start: 20221005, end: 20221005
  7. BOTOX [Suspect]
     Active Substance: ONABOTULINUMTOXINA
     Dosage: 25 UNITS, SINGLE
     Dates: start: 20221005, end: 20221005
  8. BOTOX [Suspect]
     Active Substance: ONABOTULINUMTOXINA
     Dosage: 5 UNITS, SINGLE
     Dates: start: 20221005, end: 20221005
  9. BOTOX [Suspect]
     Active Substance: ONABOTULINUMTOXINA
     Dosage: 15 UNITS, SINGLE
     Dates: start: 20221005, end: 20221005
  10. BOTOX [Suspect]
     Active Substance: ONABOTULINUMTOXINA
     Dosage: 10 UNITS, SINGLE
     Dates: start: 20221005, end: 20221005
  11. BIOTIN [Concomitant]
     Active Substance: BIOTIN
     Dosage: 10 MG, QD
     Route: 048
  12. MAGNESIUM CITRATE [Concomitant]
     Active Substance: MAGNESIUM CITRATE
     Dosage: 125 MG, QD
     Route: 048

REACTIONS (2)
  - Off label use [Unknown]
  - Therapeutic product effect incomplete [Unknown]

NARRATIVE: CASE EVENT DATE: 20220101
